FAERS Safety Report 8984960 (Version 1)
Quarter: 2012Q4

REPORT INFORMATION
  Report Type: 
  Country: IL (occurrence: IL)
  Receive Date: 20121226
  Receipt Date: 20121226
  Transmission Date: 20130627
  Serious: Yes (Hospitalization)
  Sender: FDA-Public Use
  Company Number: PHHY2012IL118658

PATIENT
  Age: 53 Year
  Sex: Female
  Weight: 53 kg

DRUGS (1)
  1. ACLASTA [Suspect]
     Indication: OSTEOPOROSIS
     Dosage: UNK UKN, UNK
     Route: 042
     Dates: start: 20120126

REACTIONS (5)
  - Road traffic accident [Unknown]
  - Urinary bladder rupture [Unknown]
  - Hip fracture [Unknown]
  - Tibia fracture [Unknown]
  - Weight bearing difficulty [Unknown]
